FAERS Safety Report 20334642 (Version 1)
Quarter: 2022Q1

REPORT INFORMATION
  Report Type: Spontaneous
  Country: CA (occurrence: None)
  Receive Date: 20220114
  Receipt Date: 20220114
  Transmission Date: 20220423
  Serious: Yes (Other)
  Sender: FDA-Public Use
  Company Number: CA-ROCHE-2998958

PATIENT
  Age: 53 Year
  Sex: Female

DRUGS (15)
  1. RITUXIMAB [Suspect]
     Active Substance: RITUXIMAB
     Indication: Rheumatoid arthritis
     Route: 042
  2. RITUXIMAB [Suspect]
     Active Substance: RITUXIMAB
     Route: 042
  3. BENADRYL [Concomitant]
     Active Substance: DIPHENHYDRAMINE HYDROCHLORIDE
     Indication: Premedication
     Route: 048
  4. BUTRANS [Concomitant]
     Active Substance: BUPRENORPHINE
  5. CALCIUM [Concomitant]
     Active Substance: CALCIUM
  6. CITALOPRAM [Concomitant]
     Active Substance: CITALOPRAM HYDROBROMIDE
  7. COLACE [Concomitant]
     Active Substance: DOCUSATE SODIUM
  8. DULOXETINE HYDROCHLORIDE [Concomitant]
     Active Substance: DULOXETINE HYDROCHLORIDE
     Route: 065
  9. IRON [Concomitant]
     Active Substance: IRON
  10. LASIX [Concomitant]
     Active Substance: FUROSEMIDE
  11. METHYLPREDNISOLONE SODIUM SUCCINATE [Concomitant]
     Active Substance: METHYLPREDNISOLONE SODIUM SUCCINATE
     Indication: Premedication
     Route: 042
  12. MONTELUKAST [Concomitant]
     Active Substance: MONTELUKAST SODIUM
  13. PANTOPRAZOLE SODIUM [Concomitant]
     Active Substance: PANTOPRAZOLE SODIUM
  14. TOVIAZ [Concomitant]
     Active Substance: FESOTERODINE FUMARATE
  15. TYLENOL [Concomitant]
     Active Substance: ACETAMINOPHEN
     Indication: Premedication
     Route: 048

REACTIONS (11)
  - Blood pressure diastolic abnormal [Unknown]
  - Blood pressure systolic abnormal [Unknown]
  - Blood pressure systolic increased [Unknown]
  - Cough [Unknown]
  - Erythema [Unknown]
  - Fall [Unknown]
  - Heart rate increased [Unknown]
  - Intentional product use issue [Unknown]
  - Off label use [Unknown]
  - Osteoarthritis [Unknown]
  - Oxygen saturation decreased [Unknown]
